FAERS Safety Report 4837966-1 (Version None)
Quarter: 2005Q4

REPORT INFORMATION
  Report Type: 
  Country: None (occurrence: None)
  Receive Date: 20051128
  Receipt Date: 20051117
  Transmission Date: 20060501
  Serious: Yes (Congenital Anomaly)
  Sender: FDA-Public Use
  Company Number: US-ROCHE-425288

PATIENT
  Age: 9 Month
  Sex: Female

DRUGS (2)
  1. ISOTRETINOIN [Suspect]
     Dates: start: 20000615, end: 20000615
  2. ORAL CONTRACEPTIVES NOS [Concomitant]
     Dates: start: 20000615, end: 20000615

REACTIONS (3)
  - CONGENITAL OPTIC NERVE ANOMALY [None]
  - DRUG EXPOSURE DURING PREGNANCY [None]
  - PREGNANCY [None]
